FAERS Safety Report 14994530 (Version 1)
Quarter: 2018Q2

REPORT INFORMATION
  Report Type: Spontaneous
  Country: US (occurrence: US)
  Receive Date: 20180521
  Receipt Date: 20180521
  Transmission Date: 20180711
  Serious: Yes (Disabling, Other)
  Sender: FDA-Public Use
  Company Number: None

PATIENT
  Age: 60 Year
  Sex: Male
  Weight: 81 kg

DRUGS (6)
  1. BUPRENORPHINE HYDROCHLORIDE. [Suspect]
     Active Substance: BUPRENORPHINE HYDROCHLORIDE
     Indication: INTERVERTEBRAL DISC OPERATION
     Dosage: ?          QUANTITY:2 TABLET(S);?
     Route: 060
     Dates: start: 20180426, end: 20180518
  2. ADDERAL TENS UNIT [Concomitant]
  3. SENNA [Concomitant]
     Active Substance: SENNA LEAF\SENNOSIDES\SENNOSIDES A AND B
  4. ASA [Concomitant]
     Active Substance: ASPIRIN
  5. MVI [Concomitant]
     Active Substance: VITAMINS
  6. IBUPROFEN. [Concomitant]
     Active Substance: IBUPROFEN

REACTIONS (8)
  - Ill-defined disorder [None]
  - Pain [None]
  - Feeling abnormal [None]
  - Product quality issue [None]
  - Pyrexia [None]
  - Product taste abnormal [None]
  - Diarrhoea [None]
  - Depression [None]

NARRATIVE: CASE EVENT DATE: 20180426
